FAERS Safety Report 15483010 (Version 1)
Quarter: 2018Q4

REPORT INFORMATION
  Report Type: Spontaneous
  Country: US (occurrence: US)
  Receive Date: 20181010
  Receipt Date: 20181010
  Transmission Date: 20190205
  Serious: Yes (Hospitalization)
  Sender: FDA-Public Use
  Company Number: US-009507513-1810USA003984

PATIENT
  Sex: Male

DRUGS (1)
  1. JANUVIA [Suspect]
     Active Substance: SITAGLIPTIN PHOSPHATE
     Indication: GLYCOSYLATED HAEMOGLOBIN INCREASED
     Dosage: 100 MG, DAILY
     Route: 048
     Dates: start: 20181005

REACTIONS (2)
  - Abdominal distension [Unknown]
  - Fluid retention [Unknown]

NARRATIVE: CASE EVENT DATE: 20181006
